FAERS Safety Report 5956719-4 (Version None)
Quarter: 2008Q4

REPORT INFORMATION
  Report Type: 
  Country: None (occurrence: None)
  Receive Date: 20081118
  Receipt Date: 20081104
  Transmission Date: 20090506
  Serious: Yes (Hospitalization, Other)
  Sender: FDA-Public Use
  Company Number: US-ELI_LILLY_AND_COMPANY-US200809003488

PATIENT
  Sex: Female

DRUGS (9)
  1. FORTEO [Suspect]
     Indication: OSTEOPOROSIS
     Dosage: 20 UG, DAILY (1/D)
     Dates: start: 20070501, end: 20080731
  2. TOPROL-XL [Concomitant]
  3. ATACAND [Concomitant]
  4. CRESTOR [Concomitant]
  5. SINGULAIR [Concomitant]
  6. COUMADIN [Concomitant]
  7. SPIRONOLACTONE [Concomitant]
  8. DIGOXIN [Concomitant]
  9. ALBUTEROL [Concomitant]

REACTIONS (5)
  - ABDOMINAL DISCOMFORT [None]
  - ATRIAL FIBRILLATION [None]
  - RENAL CELL CARCINOMA [None]
  - RENAL MASS [None]
  - VISUAL ACUITY REDUCED [None]
